FAERS Safety Report 7963690-2 (Version None)
Quarter: 2011Q4

REPORT INFORMATION
  Report Type: 
  Country: None (occurrence: None)
  Receive Date: 20111208
  Receipt Date: 20111201
  Transmission Date: 20120403
  Serious: Yes (Other)
  Sender: FDA-Public Use
  Company Number: US-BAYER-2011-116389

PATIENT
  Age: 77 Year
  Sex: Female
  Weight: 73 kg

DRUGS (2)
  1. ALEVE (CAPLET) [Suspect]
     Dosage: 2 DF, PRN
     Route: 048
  2. NISOLDIPINE [Concomitant]

REACTIONS (3)
  - HAEMATOCHEZIA [None]
  - MELAENA [None]
  - FAECES DISCOLOURED [None]
